FAERS Safety Report 10635900 (Version 4)
Quarter: 2015Q2

REPORT INFORMATION
  Report Type: Spontaneous
  Country: US (occurrence: US)
  Receive Date: 20141205
  Receipt Date: 20150402
  Transmission Date: 20150821
  Serious: No
  Sender: FDA-Public Use
  Company Number: US-PFIZER INC-2014332169

PATIENT
  Age: 49 Year
  Sex: Male
  Weight: 68 kg

DRUGS (4)
  1. RAMIPRIL. [Suspect]
     Active Substance: RAMIPRIL
     Dosage: UNK
  2. RAMIPRIL. [Suspect]
     Active Substance: RAMIPRIL
     Indication: HYPERTENSION
     Dosage: 5 MG, DAILY
     Route: 048
  3. ALTACE [Suspect]
     Active Substance: RAMIPRIL
     Dosage: 2.5 MG, UNK
  4. RAMIPRIL. [Suspect]
     Active Substance: RAMIPRIL
     Dosage: 2.5 MG, UNK

REACTIONS (6)
  - Respiration abnormal [Unknown]
  - Feeling abnormal [Unknown]
  - Tremor [Unknown]
  - Extrasystoles [Unknown]
  - Blood pressure increased [Unknown]
  - Drug ineffective [Unknown]
